FAERS Safety Report 8592756-1 (Version None)
Quarter: 2012Q3

REPORT INFORMATION
  Report Type: 
  Country: None (occurrence: None)
  Receive Date: 20120814
  Receipt Date: 20120807
  Transmission Date: 20120928
  Serious: No
  Sender: FDA-Public Use
  Company Number: US-PFIZER INC-2012193437

PATIENT
  Age: 49 Year
  Sex: Female
  Weight: 74.83 kg

DRUGS (6)
  1. ROFLUMILAST [Concomitant]
     Indication: DYSPNOEA
     Dosage: 500 MG, DAILY
  2. SEROQUEL [Concomitant]
     Indication: DEPRESSION
     Dosage: 150 MG, DAILY
  3. CHANTIX [Suspect]
     Dosage: 1 MG, 2X/DAY
     Dates: start: 20120806, end: 20120808
  4. CHANTIX [Suspect]
     Indication: SMOKING CESSATION THERAPY
     Dosage: 0.5 MG, DAILY
     Dates: start: 20120730, end: 20120801
  5. ALPRAZOLAM [Suspect]
     Indication: PANIC ATTACK
     Dosage: 0.05 MG, AS NEEDED
  6. CHANTIX [Suspect]
     Dosage: 0.5 MG, 2X/DAY
     Dates: start: 20120802, end: 20120805

REACTIONS (5)
  - DRUG INEFFECTIVE [None]
  - FEELING ABNORMAL [None]
  - AGITATION [None]
  - THERAPEUTIC RESPONSE UNEXPECTED [None]
  - PANIC ATTACK [None]
